FAERS Safety Report 4980723-6 (Version None)
Quarter: 2006Q2

REPORT INFORMATION
  Report Type: 
  Country: None (occurrence: None)
  Receive Date: 20060424
  Receipt Date: 20051019
  Transmission Date: 20061013
  Serious: Yes (Hospitalization, Disabling)
  Sender: FDA-Public Use
  Company Number: US-MERCK-0510USA08309

PATIENT
  Age: 42 Year
  Sex: Female
  Weight: 114 kg

DRUGS (3)
  1. VIOXX [Suspect]
     Indication: RHEUMATOID ARTHRITIS
     Route: 048
     Dates: start: 20001101, end: 20030901
  2. VIOXX [Suspect]
     Route: 048
     Dates: start: 19990101, end: 20010101
  3. VIOXX [Suspect]
     Route: 048
     Dates: start: 20030101, end: 20040901

REACTIONS (15)
  - BLOOD TRIGLYCERIDES INCREASED [None]
  - CARDIAC FAILURE ACUTE [None]
  - CARDIAC FAILURE CONGESTIVE [None]
  - CARDIOMEGALY [None]
  - CARDIOMYOPATHY ALCOHOLIC [None]
  - CHEST PAIN [None]
  - CONGESTIVE CARDIOMYOPATHY [None]
  - DEPRESSION [None]
  - DILATATION VENTRICULAR [None]
  - MYOCARDIAL INFARCTION [None]
  - OEDEMA PERIPHERAL [None]
  - OSTEOARTHRITIS [None]
  - PANIC DISORDER [None]
  - RENAL FAILURE [None]
  - STRESS [None]
